FAERS Safety Report 4471346-6 (Version None)
Quarter: 2004Q4

REPORT INFORMATION
  Report Type: 
  Country: None (occurrence: None)
  Receive Date: 20041006
  Receipt Date: 20040922
  Transmission Date: 20050328
  Serious: Yes (Hospitalization)
  Sender: FDA-Public Use
  Company Number: 2004EU001778

PATIENT
  Age: 56 Year
  Sex: Male

DRUGS (2)
  1. PROGRAF [Suspect]
     Indication: LIVER TRANSPLANT
     Dosage: SEE IMAGE
  2. PRENISONE    (PREDNISONE) [Suspect]
     Dosage: D
     Dates: start: 20001101

REACTIONS (8)
  - ALTERNARIA INFECTION [None]
  - ANOREXIA [None]
  - ASTHENIA [None]
  - COLITIS [None]
  - DRUG TOXICITY [None]
  - SKIN INFECTION [None]
  - SKIN ULCER [None]
  - WEIGHT DECREASED [None]
